FAERS Safety Report 8244668-0 (Version None)
Quarter: 2012Q1

REPORT INFORMATION
  Report Type: 
  Country: None (occurrence: None)
  Receive Date: 20120329
  Receipt Date: 20120104
  Transmission Date: 20120608
  Serious: No
  Sender: FDA-Public Use
  Company Number: US-MYLANLABS-2012S1000369

PATIENT
  Age: 53 Year
  Sex: Male

DRUGS (8)
  1. LORAZEPAM [Concomitant]
     Route: 048
  2. NAPROXEN [Concomitant]
     Route: 048
  3. CLONIDINE [Concomitant]
     Route: 048
  4. GABAPENTIN [Concomitant]
     Route: 048
  5. FENTANYL-100 [Suspect]
     Indication: PAIN
     Dosage: QOD
     Route: 062
  6. OXYCODONE HCL [Concomitant]
     Route: 048
  7. ATENOLOL [Concomitant]
     Route: 048
  8. ZOLPIDEM [Concomitant]
     Route: 048

REACTIONS (1)
  - FALSE NEGATIVE INVESTIGATION RESULT [None]
